FAERS Safety Report 21997809 (Version 1)
Quarter: 2023Q1

REPORT INFORMATION
  Report Type: Report from Study
  Country: US (occurrence: None)
  Receive Date: 20230216
  Receipt Date: 20230216
  Transmission Date: 20230418
  Serious: Yes (Other)
  Sender: FDA-Public Use
  Company Number: US-ADAMAS Pharma-ADM202302-000451

PATIENT
  Age: 79 Year
  Sex: Female

DRUGS (6)
  1. GOCOVRI [Suspect]
     Active Substance: AMANTADINE
     Indication: Parkinson^s disease
     Route: 048
     Dates: start: 20211105
  2. GOCOVRI [Suspect]
     Active Substance: AMANTADINE
     Indication: Dyskinesia
  3. AZILECT [Concomitant]
     Active Substance: RASAGILINE MESYLATE
     Dosage: 1MG
  4. CARBIDOPA\LEVODOPA [Concomitant]
     Active Substance: CARBIDOPA\LEVODOPA
     Dosage: EACH DF OF 25-100MG
  5. CLONAZEPAM [Concomitant]
     Active Substance: CLONAZEPAM
     Dosage: 0.5MG
  6. ENTACAPONE [Concomitant]
     Active Substance: ENTACAPONE
     Dosage: 200MG

REACTIONS (4)
  - Rotator cuff syndrome [Recovered/Resolved]
  - Fall [Recovered/Resolved]
  - Feeling abnormal [Unknown]
  - Gait disturbance [Recovered/Resolved]
